FAERS Safety Report 23433408 (Version 1)
Quarter: 2024Q1

REPORT INFORMATION
  Report Type: Spontaneous
  Country: US (occurrence: US)
  Receive Date: 20240123
  Receipt Date: 20240123
  Transmission Date: 20240409
  Serious: No
  Sender: FDA-Public Use
  Company Number: US-BAYER-2024A006408

PATIENT
  Age: 36 Year
  Sex: Male

DRUGS (1)
  1. JIVI [Suspect]
     Active Substance: DAMOCTOCOG ALFA PEGOL
     Dosage: 3500 IU (INFUSED 1 DOUBLE DOSE THEN AND 1 SINGLE DOSE 2 DAYS LATER)

REACTIONS (1)
  - Lip swelling [None]

NARRATIVE: CASE EVENT DATE: 20231230
